FAERS Safety Report 8852767 (Version 1)
Quarter: 2012Q4

REPORT INFORMATION
  Report Type: 
  Country: US (occurrence: US)
  Receive Date: 20121022
  Receipt Date: 20121022
  Transmission Date: 20130627
  Serious: Yes (Other)
  Sender: FDA-Public Use
  Company Number: US-ASTRAZENECA-2010SE49275

PATIENT
  Age: 61 Year
  Sex: Female
  Weight: 101.6 kg

DRUGS (19)
  1. LISINOPRIL [Suspect]
     Route: 048
  2. TOPROL XL [Suspect]
     Route: 048
  3. TOPROL XL [Suspect]
     Route: 048
  4. CRESTOR [Suspect]
     Route: 048
  5. NITROGLYCERIN [Concomitant]
     Dosage: 0.4 MG EVERY 5 MINUTES PRN
  6. FUROSEMIDE [Concomitant]
  7. BUSPAR [Concomitant]
  8. FLONASE [Concomitant]
     Dosage: 0.05 MG/INH 1 SPRAYS ONCE A DAY PRN
  9. MULTIVITAMINS [Concomitant]
  10. PROAIR HFA [Concomitant]
     Dosage: 90 MCG/INH 2 PUDDS QID PRN
  11. FLOVENT HFA [Concomitant]
     Dosage: 220 MCG/INH 1 PUFFS BID PRN
  12. TYLENOL [Concomitant]
  13. ATROVENT [Concomitant]
     Dosage: 2 SPRAYS 3 TMES A DAY
     Route: 045
  14. BACITRACIN [Concomitant]
     Dosage: 500 UNITS/G 1 APP 4 TIMES A DAY
     Route: 061
  15. ASPIRIN [Concomitant]
  16. NIASPAN ER [Concomitant]
  17. IMDUR [Concomitant]
  18. KLOR-CON [Concomitant]
     Dosage: 10 MEQ 1 EA ONCE A DAY
  19. DIOVAN [Concomitant]

REACTIONS (12)
  - Coronary artery disease [Unknown]
  - Accident at work [Unknown]
  - Malaise [Unknown]
  - Anxiety [Unknown]
  - Vision blurred [Unknown]
  - Blood pressure increased [Unknown]
  - Cough [Unknown]
  - Dizziness [Unknown]
  - Dizziness [Unknown]
  - Abdominal pain [Unknown]
  - Myalgia [Unknown]
  - Urticaria [Unknown]
